FAERS Safety Report 13055588 (Version 1)
Quarter: 2016Q4

REPORT INFORMATION
  Report Type: Spontaneous
  Country: NO (occurrence: NO)
  Receive Date: 20161222
  Receipt Date: 20161222
  Transmission Date: 20170207
  Serious: Yes (Other)
  Sender: FDA-Public Use
  Company Number: NO-PFIZER INC-2016565200

PATIENT
  Sex: Female

DRUGS (6)
  1. XANOR DEPOT [Suspect]
     Active Substance: ALPRAZOLAM
     Indication: POST-TRAUMATIC STRESS DISORDER
     Dosage: 0.5 MG, DAILY
     Dates: start: 2006
  2. PARALGIN FORTE [Concomitant]
     Active Substance: ACETAMINOPHEN\CODEINE PHOSPHATE
     Indication: NECK PAIN
     Dosage: 1-2 TABLETS 2X/DAY FOR SEVERAL YEARS
  3. DYMISTA [Concomitant]
     Active Substance: AZELASTINE HYDROCHLORIDE\FLUTICASONE PROPIONATE
     Indication: NASAL CONGESTION
     Dosage: 1 DF, 2X/DAY
     Dates: start: 2015
  4. XANOR [Suspect]
     Active Substance: ALPRAZOLAM
     Indication: POST-TRAUMATIC STRESS DISORDER
     Dosage: 0.5 MG, DAILY
  5. TRAMADOL. [Concomitant]
     Active Substance: TRAMADOL
     Indication: NECK PAIN
     Dosage: 50 MG 1-2 TABLETS X 2 FOR SEVERAL YEARS
  6. RELVAR [Concomitant]
     Active Substance: FLUTICASONE FUROATE\VILANTEROL TRIFENATATE
     Indication: ASTHMA
     Dosage: 1 DF, DAILY
     Dates: start: 2015

REACTIONS (3)
  - Drug intolerance [Unknown]
  - Paradoxical drug reaction [Unknown]
  - Breast cancer [Unknown]

NARRATIVE: CASE EVENT DATE: 2015
